FAERS Safety Report 16926182 (Version 1)
Quarter: 2019Q4

REPORT INFORMATION
  Report Type: Spontaneous
  Country: GR (occurrence: GR)
  Receive Date: 20191016
  Receipt Date: 20191016
  Transmission Date: 20200122
  Serious: Yes (Hospitalization, Other)
  Sender: FDA-Public Use
  Company Number: GR-BAUSCH-BL-2019-057288

PATIENT
  Age: 44 Year
  Sex: Female

DRUGS (2)
  1. HYDROXYCHLOROQUINE [Suspect]
     Active Substance: HYDROXYCHLOROQUINE
     Indication: RHEUMATOID ARTHRITIS
     Route: 065
  2. PREDNISOLONE. [Suspect]
     Active Substance: PREDNISOLONE
     Indication: RHEUMATOID ARTHRITIS
     Route: 065

REACTIONS (7)
  - Sensory disturbance [Unknown]
  - Condition aggravated [Unknown]
  - Quadriparesis [Unknown]
  - Ileus paralytic [Unknown]
  - Acute coronary syndrome [Unknown]
  - Drug ineffective [Unknown]
  - Intestinal ischaemia [Unknown]
